FAERS Safety Report 17299022 (Version 1)
Quarter: 2020Q1

REPORT INFORMATION
  Report Type: Spontaneous
  Country: US (occurrence: US)
  Receive Date: 20200122
  Receipt Date: 20200122
  Transmission Date: 20200409
  Serious: No
  Sender: FDA-Public Use
  Company Number: US-ASTRAZENECA-2019SF88951

PATIENT
  Sex: Female

DRUGS (1)
  1. SYMBICORT [Suspect]
     Active Substance: BUDESONIDE\FORMOTEROL FUMARATE DIHYDRATE
     Indication: LUNG DISORDER
     Dosage: 160/4.5 MCG, TWO INHALATIONS TWICE A DAY
     Route: 055
     Dates: start: 20190921

REACTIONS (4)
  - Wrong technique in device usage process [Not Recovered/Not Resolved]
  - Malaise [Unknown]
  - Memory impairment [Unknown]
  - Drug delivery system issue [Not Recovered/Not Resolved]
